FAERS Safety Report 8221931-0 (Version None)
Quarter: 2012Q1

REPORT INFORMATION
  Report Type: 
  Country: None (occurrence: None)
  Receive Date: 20120320
  Receipt Date: 20120312
  Transmission Date: 20120608
  Serious: Yes (Hospitalization)
  Sender: FDA-Public Use
  Company Number: CA-JNJFOC-20120306471

PATIENT
  Sex: Female
  Weight: 65.9 kg

DRUGS (2)
  1. REMICADE [Suspect]
     Indication: CROHN'S DISEASE
     Route: 042
     Dates: start: 20110512
  2. REMICADE [Suspect]
     Route: 042
     Dates: start: 20120312

REACTIONS (3)
  - MALAISE [None]
  - FISTULA [None]
  - ANAL ABSCESS [None]
